FAERS Safety Report 5040050-8 (Version None)
Quarter: 2006Q2

REPORT INFORMATION
  Report Type: 
  Country: None (occurrence: None)
  Receive Date: 20060630
  Receipt Date: 20060621
  Transmission Date: 20061013
  Serious: Yes (Hospitalization)
  Sender: FDA-Public Use
  Company Number: CA-SANOFI-SYNTHELABO-A01200604739

PATIENT
  Age: 29 Year
  Sex: Male

DRUGS (2)
  1. PRIMAQUINE [Suspect]
     Indication: MALARIA
     Dosage: 2 TABLETS DAILY
     Route: 048
     Dates: start: 20060619, end: 20060620
  2. RITALIN [Concomitant]
     Dosage: UNK
     Route: 048

REACTIONS (2)
  - EYELID OEDEMA [None]
  - RASH ERYTHEMATOUS [None]
